FAERS Safety Report 22170062 (Version 3)
Quarter: 2023Q2

REPORT INFORMATION
  Report Type: Spontaneous
  Country: US (occurrence: US)
  Receive Date: 20230404
  Receipt Date: 20230627
  Transmission Date: 20230721
  Serious: No
  Sender: FDA-Public Use
  Company Number: US-PHARMING-PHAUS2023000232

PATIENT

DRUGS (3)
  1. RUCONEST [Suspect]
     Active Substance: HUMAN C1-ESTERASE INHIBITOR
     Indication: Hereditary angioedema
     Dosage: 3700 IU, TWICE WEEKLY
     Route: 042
     Dates: start: 20200731
  2. RUCONEST [Suspect]
     Active Substance: HUMAN C1-ESTERASE INHIBITOR
     Dosage: 3700 IU, TWICE WEEKLY
     Route: 042
     Dates: start: 20200729
  3. RUCONEST [Suspect]
     Active Substance: HUMAN C1-ESTERASE INHIBITOR
     Dosage: 3700 IU, TWICE WEEKLY
     Route: 042
     Dates: start: 20200729

REACTIONS (4)
  - Condition aggravated [Unknown]
  - Insurance issue [Unknown]
  - Product dose omission issue [Unknown]
  - Intentional product use issue [Unknown]
